FAERS Safety Report 5915182-X (Version None)
Quarter: 2008Q3

REPORT INFORMATION
  Report Type: 
  Country: None (occurrence: None)
  Receive Date: 20080909
  Receipt Date: 20080109
  Transmission Date: 20090109
  Serious: Yes (Hospitalization)
  Sender: FDA-Public Use
  Company Number: 163-20785-08010575 (0)

PATIENT
  Age: 62 Year
  Sex: Female
  Weight: 85.1 kg

DRUGS (16)
  1. THALOMID [Suspect]
     Indication: MULTIPLE MYELOMA
     Dosage: 50 MG, EVERY OTHER NIGHT, ORAL : 200 MG, ORAL
     Route: 048
     Dates: start: 20050524
  2. DEXAMETHASONE [Suspect]
     Indication: MULTIPLE MYELOMA
     Dosage: 20 MG, DAYS 1-4 Q 28 DAYS : 40-12MG
     Dates: start: 20050524, end: 20071127
  3. VELCADE [Suspect]
     Indication: MULTIPLE MYELOMA
     Dosage: 1 MG/M2
     Dates: start: 20050521, end: 20071005
  4. ACYCLOVIR (ACICLOVIR) (CAPSULES) [Concomitant]
  5. ZANTAC 150 [Concomitant]
  6. LASIX [Concomitant]
  7. CENTRUM SILVER (CENTRUM SILVER) [Concomitant]
  8. CALTRATE 600 + VIT D (CALCITE D) (TABLETS) [Concomitant]
  9. POTASSIUM CHLORIDE [Concomitant]
  10. LEVAQUIN [Concomitant]
  11. FLUCONAZOLE (FLUCONAZOLE) (TABLETS) [Concomitant]
  12. TOPROL-XL [Concomitant]
  13. PLAVIX [Concomitant]
  14. ASPIRIN [Concomitant]
  15. ALLOPURINOL [Concomitant]
  16. FOLIC ACID (FOLIC ACID) (TABLETS) [Concomitant]

REACTIONS (1)
  - HAEMOGLOBIN DECREASED [None]
